FAERS Safety Report 10333175 (Version 2)
Quarter: 2014Q3

REPORT INFORMATION
  Report Type: Spontaneous
  Country: DE (occurrence: DE)
  Receive Date: 20140722
  Receipt Date: 20140801
  Transmission Date: 20150326
  Serious: Yes (Other)
  Sender: FDA-Public Use
  Company Number: DE-ROCHE-1436586

PATIENT
  Sex: Female
  Weight: 67.5 kg

DRUGS (5)
  1. METOCLOPRAMIDE DIHYDROCHLORIDE [Concomitant]
     Indication: NAUSEA
     Dosage: 30 GTT
     Route: 048
     Dates: start: 20131210, end: 20140408
  2. ONDANSETRON [Concomitant]
     Active Substance: ONDANSETRON
     Indication: HYPERTENSION
     Dosage: 1-0-0
     Route: 048
  3. AVASTIN [Suspect]
     Active Substance: BEVACIZUMAB
     Indication: BREAST CANCER METASTATIC
     Dosage: Q15D
     Route: 042
     Dates: start: 20131210, end: 20140408
  4. PACLITAXEL. [Concomitant]
     Active Substance: PACLITAXEL
     Indication: BREAST CANCER METASTATIC
     Route: 065
     Dates: start: 20131210
  5. TORASEMIDE [Concomitant]
     Active Substance: TORSEMIDE
     Dosage: 1-0-0
     Route: 065

REACTIONS (2)
  - Cardiovascular disorder [Recovering/Resolving]
  - Cardiac failure [Recovered/Resolved]

NARRATIVE: CASE EVENT DATE: 20140422
